FAERS Safety Report 5288590-0 (Version None)
Quarter: 2007Q2

REPORT INFORMATION
  Report Type: 
  Country: None (occurrence: None)
  Receive Date: 20070405
  Receipt Date: 20070326
  Transmission Date: 20071010
  Serious: Yes (Death, Hospitalization)
  Sender: FDA-Public Use
  Company Number: HQWYE734126MAR07

PATIENT
  Age: 69 Year
  Sex: Male

DRUGS (8)
  1. CORDARONE [Suspect]
     Indication: CARDIAC FAILURE
     Route: 048
     Dates: start: 20070201, end: 20070222
  2. MODOPAR [Suspect]
     Indication: PARKINSON'S DISEASE
     Route: 048
  3. STALEVO 100 [Concomitant]
     Route: 048
  4. KETOPROFEN [Suspect]
     Dosage: UNKNOWN
     Route: 048
     Dates: start: 20070210, end: 20070222
  5. ATACAND [Suspect]
     Indication: CARDIAC FAILURE
     Route: 048
     Dates: start: 20061215, end: 20070222
  6. REQUIP [Concomitant]
     Route: 048
  7. LASIX [Suspect]
     Indication: CARDIAC FAILURE
     Route: 048
     Dates: start: 20061215, end: 20070222
  8. SINEMET [Suspect]
     Indication: PARKINSON'S DISEASE
     Route: 048

REACTIONS (7)
  - ANAEMIA [None]
  - CONDITION AGGRAVATED [None]
  - DYSPNOEA [None]
  - LEUKOPENIA [None]
  - MELAENA [None]
  - THROMBOCYTOPENIA [None]
  - THROMBOCYTOPENIC PURPURA [None]
